FAERS Safety Report 19569983 (Version 1)
Quarter: 2021Q3

REPORT INFORMATION
  Report Type: Report from Study
  Country: US (occurrence: US)
  Receive Date: 20210716
  Receipt Date: 20210716
  Transmission Date: 20211014
  Serious: Yes (Death, Hospitalization, Other)
  Sender: FDA-Public Use
  Company Number: US-BRISTOL-MYERS SQUIBB COMPANY-BMS-2021-068941

PATIENT
  Age: 61 Year
  Sex: Female

DRUGS (2)
  1. NIVOLUMAB [Suspect]
     Active Substance: NIVOLUMAB
     Indication: LUNG ADENOCARCINOMA STAGE IV
     Dosage: UNK
     Route: 065
     Dates: start: 20210514, end: 20210625
  2. RIGOSERTIB [Suspect]
     Active Substance: RIGOSERTIB
     Indication: LUNG ADENOCARCINOMA STAGE IV
     Dosage: UNK
     Route: 065
     Dates: start: 20210514, end: 20210625

REACTIONS (5)
  - Death [Fatal]
  - Asthenia [Unknown]
  - Urinary tract infection [Unknown]
  - Mental status changes [Unknown]
  - Abdominal distension [Unknown]
